FAERS Safety Report 6731717-1 (Version None)
Quarter: 2010Q2

REPORT INFORMATION
  Report Type: 
  Country: None (occurrence: None)
  Receive Date: 20100518
  Receipt Date: 20100518
  Transmission Date: 20101027
  Serious: Yes (Hospitalization, Other)
  Sender: FDA-Public Use
  Company Number: None

PATIENT
  Age: 84 Year
  Sex: Female

DRUGS (3)
  1. CAPTOPRIL [Suspect]
     Indication: HYPERTENSION
     Dosage: 6.25 MG BID PO ; 2 DOSES GIVEN
     Route: 048
     Dates: start: 20100331, end: 20100401
  2. CAPTOPRIL [Suspect]
     Indication: NAUSEA
     Dosage: 6.25 MG BID PO ; 2 DOSES GIVEN
     Route: 048
     Dates: start: 20100331, end: 20100401
  3. REGLAN [Suspect]
     Indication: VOMITING
     Dosage: 10 MG Q6H IV ; 1 DOSE GIVEN
     Route: 042
     Dates: start: 20100401, end: 20100401

REACTIONS (2)
  - ANGIOEDEMA [None]
  - RENAL FAILURE ACUTE [None]
